FAERS Safety Report 19051648 (Version 1)
Quarter: 2021Q1

REPORT INFORMATION
  Report Type: Spontaneous
  Country: IN (occurrence: IN)
  Receive Date: 20210324
  Receipt Date: 20210324
  Transmission Date: 20210420
  Serious: Yes (Other)
  Sender: FDA-Public Use
  Company Number: NVSC2021IN059310

PATIENT

DRUGS (1)
  1. PAGENAX [Suspect]
     Active Substance: BROLUCIZUMAB
     Indication: DIABETIC RETINAL OEDEMA
     Dosage: ONE INJECTION GIVEN ONLY
     Route: 031

REACTIONS (2)
  - Product use in unapproved indication [Unknown]
  - Vitritis [Unknown]

NARRATIVE: CASE EVENT DATE: 20210309
